FAERS Safety Report 9492887 (Version 1)
Quarter: 2013Q3

REPORT INFORMATION
  Report Type: Spontaneous
  Country: CN (occurrence: CN)
  Receive Date: 20130901
  Receipt Date: 20130901
  Transmission Date: 20140515
  Serious: Yes (Other)
  Sender: FDA-Public Use
  Company Number: CN-PFIZER INC-2013248978

PATIENT
  Age: 4 Year
  Sex: Female
  Weight: 38 kg

DRUGS (2)
  1. SOLU-MEDROL [Suspect]
     Indication: PNEUMONIA
     Dosage: 20 MG, 1X/DAY
     Route: 041
     Dates: start: 20121123, end: 20121126
  2. SOLU-MEDROL [Suspect]
     Indication: HYPERPYREXIA

REACTIONS (1)
  - Occult blood positive [Recovered/Resolved]
